FAERS Safety Report 21848271 (Version 2)
Quarter: 2023Q1

REPORT INFORMATION
  Report Type: Spontaneous
  Country: US (occurrence: US)
  Receive Date: 20230111
  Receipt Date: 20230324
  Transmission Date: 20230417
  Serious: Yes (Other)
  Sender: FDA-Public Use
  Company Number: US-BAYER-2023A001851

PATIENT
  Age: 29 Year
  Sex: Male

DRUGS (1)
  1. ALEVE [Suspect]
     Active Substance: NAPROXEN SODIUM
     Dosage: TWICE A DAY
     Dates: start: 20221218, end: 20221228

REACTIONS (10)
  - Drug hypersensitivity [Recovered/Resolved]
  - Genital lesion [Recovered/Resolved]
  - Rash pruritic [Unknown]
  - Skin lesion [Not Recovered/Not Resolved]
  - Pain of skin [Unknown]
  - Pruritus genital [None]
  - Genital paraesthesia [None]
  - Penile dermatitis [None]
  - Skin exfoliation [None]
  - Skin discolouration [None]

NARRATIVE: CASE EVENT DATE: 20221219
